FAERS Safety Report 11468180 (Version 2)
Quarter: 2018Q2

REPORT INFORMATION
  Report Type: Spontaneous
  Country: US (occurrence: US)
  Receive Date: 20150908
  Receipt Date: 20180517
  Transmission Date: 20180711
  Serious: No
  Sender: FDA-Public Use
  Company Number: US-SA-2015SA134494

PATIENT
  Age: 53 Year
  Sex: Female

DRUGS (7)
  1. SOLOSTAR [Concomitant]
     Active Substance: DEVICE
     Indication: TYPE 2 DIABETES MELLITUS
  2. LANTUS SOLOSTAR [Suspect]
     Active Substance: INSULIN GLARGINE
     Indication: TYPE 2 DIABETES MELLITUS
     Dosage: 40AM/40PM ;UNITS NOT SPECIFIED?DAILY DOSE:80
     Route: 051
  3. TANZEUM [Suspect]
     Active Substance: ALBIGLUTIDE
     Route: 065
  4. SOLOSTAR [Concomitant]
     Active Substance: DEVICE
     Indication: TYPE 2 DIABETES MELLITUS
  5. SOLOSTAR [Concomitant]
     Active Substance: DEVICE
     Indication: TYPE 2 DIABETES MELLITUS
  6. JARDIANCE [Concomitant]
     Active Substance: EMPAGLIFLOZIN
  7. LANTUS SOLOSTAR [Suspect]
     Active Substance: INSULIN GLARGINE
     Indication: TYPE 2 DIABETES MELLITUS
     Dosage: DOSE:102 UNIT(S)
     Route: 051

REACTIONS (11)
  - Palpitations [Unknown]
  - Panic disorder [Not Recovered/Not Resolved]
  - Back pain [Unknown]
  - Headache [Unknown]
  - Hypersensitivity [Unknown]
  - Hyperhidrosis [Unknown]
  - Off label use [Unknown]
  - Blood glucose increased [Unknown]
  - Influenza [Unknown]
  - Blood glucose abnormal [Unknown]
  - Pruritus [Unknown]

NARRATIVE: CASE EVENT DATE: 20150830
